FAERS Safety Report 12213239 (Version 1)
Quarter: 2016Q1

REPORT INFORMATION
  Report Type: Spontaneous
  Country: US (occurrence: None)
  Receive Date: 20160325
  Receipt Date: 20160325
  Transmission Date: 20160526
  Serious: Yes (Hospitalization)
  Sender: FDA-Public Use
  Company Number: None

PATIENT
  Age: 71 Year
  Sex: Male
  Weight: 81.5 kg

DRUGS (1)
  1. IFOSFAMIDE. [Suspect]
     Active Substance: IFOSFAMIDE
     Route: 042
     Dates: start: 20160311, end: 20160312

REACTIONS (5)
  - Dysuria [None]
  - Nausea [None]
  - Haematuria [None]
  - Cystitis haemorrhagic [None]
  - Vomiting [None]

NARRATIVE: CASE EVENT DATE: 20160221
